FAERS Safety Report 16998614 (Version 2)
Quarter: 2019Q4

REPORT INFORMATION
  Report Type: Report from Study
  Country: None (occurrence: CO)
  Receive Date: 20191106
  Receipt Date: 20191107
  Transmission Date: 20200122
  Serious: Yes (Hospitalization)
  Sender: FDA-Public Use
  Company Number: CO-ABBVIE-19K-036-2869182-00

PATIENT
  Age: 15 Year
  Sex: Female
  Weight: 36 kg

DRUGS (4)
  1. HUMIRA [Suspect]
     Active Substance: ADALIMUMAB
     Route: 058
  2. SOMATROPIN. [Concomitant]
     Active Substance: SOMATROPIN
     Indication: GROWTH DISORDER
     Route: 051
     Dates: start: 20181231
  3. HUMIRA [Suspect]
     Active Substance: ADALIMUMAB
     Indication: CROHN^S DISEASE
     Route: 058
     Dates: start: 20181030
  4. ESOMEPRAZOLE. [Concomitant]
     Active Substance: ESOMEPRAZOLE MAGNESIUM
     Indication: CROHN^S DISEASE
     Route: 048
     Dates: start: 201810

REACTIONS (13)
  - Colitis [Not Recovered/Not Resolved]
  - Ill-defined disorder [Unknown]
  - Pain [Unknown]
  - Fluid retention [Not Recovered/Not Resolved]
  - Inflammation [Not Recovered/Not Resolved]
  - Off label use [Unknown]
  - Eye inflammation [Not Recovered/Not Resolved]
  - Headache [Unknown]
  - Diarrhoea [Unknown]
  - Vomiting [Not Recovered/Not Resolved]
  - Abdominal pain [Unknown]
  - Crohn^s disease [Recovering/Resolving]
  - Drug ineffective [Unknown]

NARRATIVE: CASE EVENT DATE: 20181030
